FAERS Safety Report 11283173 (Version 1)
Quarter: 2015Q3

REPORT INFORMATION
  Report Type: Spontaneous
  Country: US (occurrence: US)
  Receive Date: 20150720
  Receipt Date: 20150720
  Transmission Date: 20151125
  Serious: No
  Sender: FDA-Public Use
  Company Number: US-TAKEDA-2015TUS009304

PATIENT
  Age: 32 Year
  Sex: Female
  Weight: 86.17 kg

DRUGS (5)
  1. CONTRAVE [Suspect]
     Active Substance: BUPROPION HYDROCHLORIDE\NALTREXONE HYDROCHLORIDE
     Dosage: 16MG/180MG 1 DF, BID
     Route: 048
     Dates: start: 20150610, end: 20150616
  2. CONTRAVE [Suspect]
     Active Substance: BUPROPION HYDROCHLORIDE\NALTREXONE HYDROCHLORIDE
     Dosage: 32MG/360MG 2 DF, BID
     Route: 048
     Dates: start: 20150624, end: 20150625
  3. CONTRAVE [Suspect]
     Active Substance: BUPROPION HYDROCHLORIDE\NALTREXONE HYDROCHLORIDE
     Dosage: 24MG/270MG 3 DF, QD
     Route: 048
     Dates: start: 20150617, end: 20150623
  4. CONTRAVE [Suspect]
     Active Substance: BUPROPION HYDROCHLORIDE\NALTREXONE HYDROCHLORIDE
     Indication: WEIGHT CONTROL
     Dosage: 8MG/90MG 1 DF, QD
     Route: 048
     Dates: start: 20150603, end: 20150609
  5. IBUPROFEN. [Concomitant]
     Active Substance: IBUPROFEN
     Indication: PAIN
     Dosage: UNK
     Route: 048

REACTIONS (1)
  - Anxiety [Recovering/Resolving]

NARRATIVE: CASE EVENT DATE: 201506
